FAERS Safety Report 6572906-9 (Version None)
Quarter: 2010Q1

REPORT INFORMATION
  Report Type: 
  Country: None (occurrence: None)
  Receive Date: 20100207
  Receipt Date: 20100203
  Transmission Date: 20100710
  Serious: Yes (Hospitalization)
  Sender: FDA-Public Use
  Company Number: US-BRISTOL-MYERS SQUIBB COMPANY-14952329

PATIENT
  Age: 63 Year
  Sex: Male

DRUGS (10)
  1. IXABEPILONE [Suspect]
     Indication: NEOPLASM
     Dosage: DOSE FREQUENCY: DAY 1,8+15. CYCLE 3 DAY 1 STARTED ON 19JAN2010.
  2. SUNITINIB MALATE [Suspect]
     Indication: NEOPLASM
     Dosage: DOSE FREQUENCY: STARTS ON DAY 8. CYCLE 3 DAY 1 STARTED ON 19JAN2010.
  3. PRILOSEC [Concomitant]
  4. CELEBREX [Concomitant]
  5. MULTIPLE VITAMINS [Concomitant]
  6. CADUET [Concomitant]
  7. VICODIN [Concomitant]
  8. OSTEO BI-FLEX [Concomitant]
  9. CREON [Concomitant]
  10. IBUPROFEN [Concomitant]

REACTIONS (2)
  - INTESTINAL PERFORATION [None]
  - NEUTROPENIA [None]
